FAERS Safety Report 12212281 (Version 1)
Quarter: 2016Q1

REPORT INFORMATION
  Report Type: Other
  Country: US (occurrence: US)
  Receive Date: 20160325
  Receipt Date: 20160325
  Transmission Date: 20160526
  Serious: Yes (Disabling)
  Sender: FDA-Public Use
  Company Number: US-DEP_02497_2015

PATIENT
  Age: 63 Year
  Sex: Male
  Weight: 65 kg

DRUGS (5)
  1. GRALISE [Suspect]
     Active Substance: GABAPENTIN
     Indication: NEURALGIA
     Dosage: SAMPLE PACK, WITH THE EVENING MEAL
     Route: 048
     Dates: start: 201412
  2. CELEBREX [Concomitant]
     Active Substance: CELECOXIB
     Indication: BACK PAIN
     Route: 048
     Dates: start: 2010
  3. PRAVACHOL [Concomitant]
     Active Substance: PRAVASTATIN SODIUM
     Indication: BLOOD CHOLESTEROL INCREASED
     Route: 048
     Dates: start: 2012
  4. GRALISE [Suspect]
     Active Substance: GABAPENTIN
     Indication: SURGERY
     Dosage: SAMPLE PACK, TITRATED UP TO 1800 MG, ONCE DAILY
     Route: 048
     Dates: start: 201412, end: 201412
  5. GRALISE [Suspect]
     Active Substance: GABAPENTIN
     Indication: OFF LABEL USE
     Dosage: SAMPLE PACK, WITH THE EVENING MEAL
     Route: 048
     Dates: start: 201412, end: 201412

REACTIONS (3)
  - Fear [Unknown]
  - Somnolence [Unknown]
  - Impaired driving ability [Unknown]

NARRATIVE: CASE EVENT DATE: 201412
